FAERS Safety Report 9362314 (Version 1)
Quarter: 2013Q2

REPORT INFORMATION
  Report Type: Spontaneous
  Country: US (occurrence: US)
  Receive Date: 20130622
  Receipt Date: 20130622
  Transmission Date: 20140414
  Serious: No
  Sender: FDA-Public Use
  Company Number: US-US-EMD SERONO, INC.-7048179

PATIENT
  Sex: Male

DRUGS (2)
  1. REBIF [Suspect]
     Indication: PRODUCT USED FOR UNKNOWN INDICATION
     Route: 058
     Dates: start: 20100803, end: 2011
  2. TYLENOL [Concomitant]
     Indication: PREMEDICATION

REACTIONS (4)
  - Infertility male [Recovered/Resolved]
  - Eye disorder [Unknown]
  - Influenza like illness [Unknown]
  - Headache [Unknown]
